FAERS Safety Report 9822276 (Version 2)
Quarter: 2014Q1

REPORT INFORMATION
  Report Type: Spontaneous
  Country: IT (occurrence: IT)
  Receive Date: 20140116
  Receipt Date: 20140205
  Transmission Date: 20141002
  Serious: Yes (Hospitalization)
  Sender: FDA-Public Use
  Company Number: IT-SA-2014SA002273

PATIENT
  Age: 66 Year
  Sex: Female

DRUGS (4)
  1. ELOXATIN [Suspect]
     Indication: COLON CANCER
     Route: 065
     Dates: start: 20131015
  2. ELOXATIN [Suspect]
     Indication: COLON CANCER
     Route: 065
     Dates: start: 20131208
  3. ELOXATIN [Suspect]
     Indication: COLON CANCER
     Dosage: DOSE- 130 MG/SQ. M?FORM- CONCENTRATE FOR INJECTION SOLUTION
     Route: 042
     Dates: start: 20131221, end: 20131221
  4. ELOXATIN [Suspect]
     Indication: COLON CANCER
     Dosage: DOSE- 130 MG/SQ. M?FORM- CONCENTRATE FOR INJECTION SOLUTION
     Route: 042
     Dates: start: 20131221, end: 20131221

REACTIONS (2)
  - Eyelid ptosis [Recovered/Resolved]
  - Dyspnoea [Recovered/Resolved]
